FAERS Safety Report 4345629-4 (Version None)
Quarter: 2004Q2

REPORT INFORMATION
  Report Type: 
  Country: None (occurrence: None)
  Receive Date: 20040421
  Receipt Date: 20040414
  Transmission Date: 20050107
  Serious: No
  Sender: FDA-Public Use
  Company Number: 2004UW07690

PATIENT

DRUGS (1)
  1. IRESSA [Suspect]
     Indication: LUNG NEOPLASM MALIGNANT
     Dates: start: 20040201

REACTIONS (4)
  - EYE PAIN [None]
  - FACIAL PAIN [None]
  - HEADACHE [None]
  - SENSATION OF PRESSURE [None]
